FAERS Safety Report 5339487-9 (Version None)
Quarter: 2007Q2

REPORT INFORMATION
  Report Type: 
  Country: None (occurrence: None)
  Receive Date: 20070404
  Receipt Date: 20060524
  Transmission Date: 20071010
  Serious: Yes (Other)
  Sender: FDA-Public Use
  Company Number: 2006049030

PATIENT
  Age: 24 Year
  Sex: Male
  Weight: 129.2752 kg

DRUGS (3)
  1. GEODON [Suspect]
     Indication: BIPOLAR DISORDER
     Dosage: 80 MG (80 MG, 1 IN 1 D) ORAL
     Route: 048
     Dates: start: 20050101, end: 20060301
  2. GEODON [Suspect]
     Indication: SCHIZOAFFECTIVE DISORDER
     Dosage: 80 MG (80 MG, 1 IN 1 D) ORAL
     Route: 048
     Dates: start: 20050101, end: 20060301
  3. ADDERALL (AMFEAAMINE ASPARTATE, AMFETAMINE SULFATE, DEXAMEFETAMINE SAC [Concomitant]

REACTIONS (2)
  - ELECTRIC SHOCK [None]
  - PARALYSIS [None]
